FAERS Safety Report 9544125 (Version 1)
Quarter: 2013Q2

REPORT INFORMATION
  Report Type: Spontaneous
  Country: US (occurrence: None)
  Receive Date: 20130524
  Receipt Date: 20130524
  Transmission Date: 20140414
  Serious: Yes (Hospitalization)
  Sender: FDA-Public Use
  Company Number: PHEH2013US001807

PATIENT
  Age: 48 Year
  Sex: Female
  Weight: 86.2 kg

DRUGS (1)
  1. GILENYA [Suspect]
     Indication: MULTIPLE SCLEROSIS
     Route: 048
     Dates: start: 20120907

REACTIONS (3)
  - Headache [None]
  - Blood glucose decreased [None]
  - Atrioventricular block first degree [None]
